FAERS Safety Report 4976325-8 (Version None)
Quarter: 2006Q2

REPORT INFORMATION
  Report Type: 
  Country: None (occurrence: None)
  Receive Date: 20060412
  Receipt Date: 20030403
  Transmission Date: 20061013
  Serious: Yes (Other)
  Sender: FDA-Public Use
  Company Number: 2006041278

PATIENT
  Sex: Female
  Weight: 70 kg

DRUGS (3)
  1. LYRICA [Suspect]
     Indication: PAIN
     Dosage: 600 MG (300 MG, 2 IN 1 D), ORAL
     Route: 048
     Dates: start: 20050801
  2. EFFEXOR XR [Concomitant]
  3. PANTOPRAZOLE SODIUM [Concomitant]

REACTIONS (2)
  - ABDOMINAL DISTENSION [None]
  - TRISMUS [None]
